FAERS Safety Report 6663541-2 (Version None)
Quarter: 2010Q2

REPORT INFORMATION
  Report Type: 
  Country: None (occurrence: None)
  Receive Date: 20100401
  Receipt Date: 20100320
  Transmission Date: 20101027
  Serious: Yes (Other)
  Sender: FDA-Public Use
  Company Number: US-PFIZER INC-2010036732

PATIENT
  Sex: Female
  Weight: 74.83 kg

DRUGS (4)
  1. CHANTIX [Suspect]
     Indication: SMOKING CESSATION THERAPY
     Dosage: 0.5 MG, 1X/DAY
     Route: 048
  2. XANAX [Concomitant]
     Dosage: UNK
  3. ESTROSTEP FE [Concomitant]
     Dosage: UNK
  4. CYMBALTA [Concomitant]
     Dosage: UNK

REACTIONS (3)
  - DEPRESSION [None]
  - SUICIDAL BEHAVIOUR [None]
  - SUICIDAL IDEATION [None]
